FAERS Safety Report 7601275-8 (Version None)
Quarter: 2011Q3

REPORT INFORMATION
  Report Type: 
  Country: None (occurrence: None)
  Receive Date: 20110711
  Receipt Date: 20110701
  Transmission Date: 20111222
  Serious: Yes (Other)
  Sender: FDA-Public Use
  Company Number: PHHY2011CA58964

PATIENT
  Age: 7 Week
  Sex: Female

DRUGS (1)
  1. AMIODARONE HCL [Suspect]
     Indication: TACHYCARDIA

REACTIONS (5)
  - SUPRAVENTRICULAR EXTRASYSTOLES [None]
  - HYPOTHYROIDISM [None]
  - CARDIAC ARREST NEONATAL [None]
  - DEVELOPMENTAL DELAY [None]
  - ATRIAL TACHYCARDIA [None]
